FAERS Safety Report 10397984 (Version 3)
Quarter: 2015Q2

REPORT INFORMATION
  Report Type: Spontaneous
  Country: JP (occurrence: JP)
  Receive Date: 20140821
  Receipt Date: 20150601
  Transmission Date: 20150821
  Serious: Yes (Death, Other)
  Sender: FDA-Public Use
  Company Number: JP-ROCHE-1446114

PATIENT
  Age: 75 Year
  Sex: Male

DRUGS (7)
  1. ARTIST [Concomitant]
     Active Substance: CARVEDILOL
     Route: 048
  2. COPEGUS [Suspect]
     Active Substance: RIBAVIRIN
     Indication: HEPATIC CIRRHOSIS
     Dosage: TIME OF UNCERTAINTY ONE DOSAGE ADMINISTERING
     Route: 048
     Dates: start: 20140724, end: 20140727
  3. BAYASPIRIN [Concomitant]
     Active Substance: ASPIRIN
     Route: 048
  4. AZILVA [Concomitant]
     Active Substance: AZILSARTAN KAMEDOXOMIL
     Route: 048
  5. MUCOSTA [Concomitant]
     Active Substance: REBAMIPIDE
     Route: 048
  6. PEGASYS [Suspect]
     Active Substance: PEGINTERFERON ALFA-2A
     Indication: HEPATIC CIRRHOSIS
     Dosage: TIME OF UNCERTAINTY ONE DOSAGE ADMINISTERING
     Route: 058
     Dates: start: 20140724, end: 20140724
  7. TAKEPRON [Concomitant]
     Active Substance: LANSOPRAZOLE
     Route: 048

REACTIONS (3)
  - Depressed level of consciousness [Unknown]
  - Blood pressure decreased [Unknown]
  - Interstitial lung disease [Fatal]

NARRATIVE: CASE EVENT DATE: 20140725
